FAERS Safety Report 8591680-8 (Version None)
Quarter: 2012Q3

REPORT INFORMATION
  Report Type: 
  Country: None (occurrence: None)
  Receive Date: 20120814
  Receipt Date: 20120807
  Transmission Date: 20120928
  Serious: Yes (Other)
  Sender: FDA-Public Use
  Company Number: JP-EISAI INC-E2020-11174-SPO-JP

PATIENT
  Age: 83 Year
  Sex: Male

DRUGS (1)
  1. ARICEPT [Suspect]
     Route: 048
     Dates: end: 20120731

REACTIONS (1)
  - PANCYTOPENIA [None]
